FAERS Safety Report 4270290-7 (Version None)
Quarter: 2004Q1

REPORT INFORMATION
  Report Type: 
  Country: None (occurrence: None)
  Receive Date: 20040113
  Receipt Date: 20040113
  Transmission Date: 20041129
  Serious: Yes (Hospitalization)
  Sender: FDA-Public Use
  Company Number: None

PATIENT
  Age: 68 Year
  Sex: Female
  Weight: 49.8957 kg

DRUGS (15)
  1. TOPOTECAN (DAY 1-5 Q 28 DAYS) [Suspect]
     Indication: CERVIX CARCINOMA RECURRENT
     Dosage: 0.6 /M2 IV DAYS 1-5
     Route: 042
     Dates: start: 20031117, end: 20031121
  2. TOPOTECAN (DAY 1-5 Q 28 DAYS) [Suspect]
     Indication: CERVIX CARCINOMA RECURRENT
     Dosage: 0.6 /M2 IV DAYS 1-5
     Route: 042
     Dates: start: 20031208, end: 20031212
  3. TOPOTECAN (DAY 1-5 Q 28 DAYS) [Suspect]
     Indication: CERVIX CARCINOMA RECURRENT
     Dosage: 0.6 /M2 IV DAYS 1-5
     Route: 042
     Dates: start: 20031229, end: 20040102
  4. CISPLATIN [Suspect]
     Indication: CERVIX CARCINOMA RECURRENT
     Dosage: 50 MG/M2 IV DAY 5
     Route: 042
     Dates: start: 20031121
  5. CISPLATIN [Suspect]
     Indication: CERVIX CARCINOMA RECURRENT
     Dosage: 50 MG/M2 IV DAY 5
     Route: 042
     Dates: start: 20031212
  6. CISPLATIN [Suspect]
     Indication: CERVIX CARCINOMA RECURRENT
     Dosage: 50 MG/M2 IV DAY 5
     Route: 042
     Dates: start: 20040102
  7. KYTRIL [Concomitant]
  8. M.V.I. [Concomitant]
  9. REGLAN [Concomitant]
  10. MOTRIN [Concomitant]
  11. MYLANTA [Concomitant]
  12. METAMUCIL-2 [Concomitant]
  13. NYSTATIN [Concomitant]
  14. ... [Concomitant]
  15. SUDAFED S.A. [Concomitant]

REACTIONS (4)
  - ABDOMINAL PAIN [None]
  - FATIGUE [None]
  - HAEMATOCRIT DECREASED [None]
  - HAEMOGLOBIN DECREASED [None]
